FAERS Safety Report 18527607 (Version 2)
Quarter: 2020Q4

REPORT INFORMATION
  Report Type: Report from Study
  Country: MX (occurrence: MX)
  Receive Date: 20201120
  Receipt Date: 20201130
  Transmission Date: 20210114
  Serious: Yes (Life-Threatening, Other)
  Sender: FDA-Public Use
  Company Number: NVSC2020MX293178

PATIENT
  Age: 52 Year
  Sex: Male
  Weight: 71 kg

DRUGS (6)
  1. CICLOSPORIN [Concomitant]
     Active Substance: CYCLOSPORINE
     Indication: PRODUCT USED FOR UNKNOWN INDICATION
     Dosage: 100 MG, Q12H
     Route: 048
     Dates: start: 202009
  2. FILGRASTIM [Suspect]
     Active Substance: FILGRASTIM
     Indication: HAEMOGLOBIN DECREASED
  3. CICLOSPORIN [Suspect]
     Active Substance: CYCLOSPORINE
     Indication: PRODUCT USED FOR UNKNOWN INDICATION
     Dosage: 100 MG, Q12H
     Route: 048
     Dates: start: 202009
  4. FILGRASTIM [Suspect]
     Active Substance: FILGRASTIM
     Indication: PLATELET COUNT DECREASED
     Dosage: 1 DF, QW
     Route: 058
     Dates: start: 202009
  5. FOLIC ACID. [Concomitant]
     Active Substance: FOLIC ACID
     Indication: HYPOVITAMINOSIS
     Dosage: UNK, QD
     Route: 048
     Dates: start: 202006
  6. VITAMIN B COMPLEX [Concomitant]
     Active Substance: CYANOCOBALAMIN\DEXPANTHENOL\NIACINAMIDE\PYRIDOXINE HYDROCHLORIDE\RIBOFLAVIN 5^-PHOSPHATE SODIUM\THIAMINE HYDROCHLORIDE\VITAMIN B COMPLEX
     Indication: HYPOVITAMINOSIS
     Dosage: UNK, QD
     Route: 048
     Dates: start: 202006

REACTIONS (5)
  - Platelet count decreased [Unknown]
  - Haemoglobin decreased [Recovered/Resolved]
  - Product use in unapproved indication [Unknown]
  - Haemoglobin decreased [Unknown]
  - Anaemia [Recovering/Resolving]

NARRATIVE: CASE EVENT DATE: 20201022
